FAERS Safety Report 24692400 (Version 1)
Quarter: 2024Q4

REPORT INFORMATION
  Report Type: Spontaneous
  Country: DE (occurrence: DE)
  Receive Date: 20241203
  Receipt Date: 20241203
  Transmission Date: 20250115
  Serious: Yes (Other)
  Sender: MYLAN
  Company Number: DE-EMB-M202203776-1

PATIENT
  Sex: Male
  Weight: 2.679 kg

DRUGS (2)
  1. CITALOPRAM [Suspect]
     Active Substance: CITALOPRAM
     Indication: Depression
     Dosage: 20 MILLIGRAM, QD (WHOLE PREGNANCY (CONCEPTION UNTIL DELIVERY)
     Route: 064
     Dates: start: 202202, end: 202211
  2. LOPERAMIDE [Concomitant]
     Active Substance: LOPERAMIDE
     Indication: Irritable bowel syndrome
     Dosage: 2 MILLIGRAM, QOD (GESTATIONAL WEEK 0 - 5, DOSAGE BETWEEN 1 AND 2 TABLETS (2 TO 4 MG) PER DAY)
     Route: 064

REACTIONS (2)
  - Small for dates baby [Recovered/Resolved]
  - Foetal exposure during pregnancy [Unknown]
